FAERS Safety Report 20482346 (Version 3)
Quarter: 2022Q1

REPORT INFORMATION
  Report Type: Spontaneous
  Country: US (occurrence: US)
  Receive Date: 20220216
  Receipt Date: 20220317
  Transmission Date: 20220424
  Serious: No
  Sender: FDA-Public Use
  Company Number: US-UNITED THERAPEUTICS-UNT-2022-002840

PATIENT
  Sex: Female
  Weight: 96.145 kg

DRUGS (4)
  1. TYVASO [Suspect]
     Active Substance: TREPROSTINIL
     Indication: Pulmonary arterial hypertension
     Dosage: UNK
     Dates: start: 20220112
  2. TYVASO [Suspect]
     Active Substance: TREPROSTINIL
     Dosage: 18-72 ?G, QID
  3. TYVASO [Suspect]
     Active Substance: TREPROSTINIL
     Dosage: 48 ?G
  4. XARELTO [Concomitant]
     Active Substance: RIVAROXABAN
     Indication: Product used for unknown indication
     Dosage: UNK
     Route: 065

REACTIONS (8)
  - Orthopnoea [Unknown]
  - Epistaxis [Recovering/Resolving]
  - Insomnia [Unknown]
  - Headache [Recovering/Resolving]
  - Anxiety [Unknown]
  - Restlessness [Unknown]
  - Cough [Unknown]
  - Sleep disorder [Unknown]
